FAERS Safety Report 6086455-8 (Version None)
Quarter: 2009Q1

REPORT INFORMATION
  Report Type: 
  Country: None (occurrence: None)
  Receive Date: 20090223
  Receipt Date: 20090210
  Transmission Date: 20090719
  Serious: Yes (Other)
  Sender: FDA-Public Use
  Company Number: PHHY2009CR04832

PATIENT
  Age: 46 Year
  Sex: Male

DRUGS (4)
  1. DIOVAN HCT [Suspect]
     Indication: HYPERTENSION
     Dosage: 320/12.5 MG PER DAY
     Route: 048
  2. DIOVAN HCT [Suspect]
     Indication: DIZZINESS
     Dosage: 160/12.5 MG
  3. NORVASC [Suspect]
     Indication: HYPERTENSION
  4. NORVASC [Suspect]
     Indication: DIZZINESS

REACTIONS (4)
  - BLOOD PRESSURE INADEQUATELY CONTROLLED [None]
  - DIABETES MELLITUS [None]
  - HYPOGLYCAEMIA [None]
  - HYPOTENSION [None]
